FAERS Safety Report 6400617-9 (Version None)
Quarter: 2009Q4

REPORT INFORMATION
  Report Type: 
  Country: None (occurrence: None)
  Receive Date: 20091014
  Receipt Date: 20091005
  Transmission Date: 20100525
  Serious: Yes (Hospitalization)
  Sender: FDA-Public Use
  Company Number: PHHY2009JP41475

PATIENT
  Age: 46 Year
  Sex: Male

DRUGS (6)
  1. CYCLOSPORINE [Suspect]
     Indication: SYSTEMIC LUPUS ERYTHEMATOSUS
     Dosage: 100 MG DAILY
     Dates: start: 20010101, end: 20090401
  2. PREDNISOLONE [Concomitant]
     Indication: SYSTEMIC LUPUS ERYTHEMATOSUS
     Dosage: 60 MG, UNK
     Route: 048
     Dates: start: 20010101
  3. PREDNISOLONE [Concomitant]
     Dosage: 8 MG, UNK
  4. PREDNISOLONE [Concomitant]
     Dosage: 20 MG, UNK
  5. PREDNISOLONE [Concomitant]
     Dosage: 80 MG, UNK
  6. PREDNISOLONE [Concomitant]
     Dosage: 10 MG, UNK

REACTIONS (6)
  - ABDOMINAL PAIN [None]
  - COLITIS ISCHAEMIC [None]
  - CYTOMEGALOVIRUS INFECTION [None]
  - GASTROINTESTINAL EROSION [None]
  - LARGE INTESTINAL ULCER [None]
  - RECTAL ULCER [None]
